FAERS Safety Report 4614862-6 (Version None)
Quarter: 2005Q1

REPORT INFORMATION
  Report Type: 
  Country: None (occurrence: None)
  Receive Date: 20050318
  Receipt Date: 20050318
  Transmission Date: 20050727
  Serious: Yes (Hospitalization)
  Sender: FDA-Public Use
  Company Number: None

PATIENT
  Age: 63 Year
  Sex: Male

DRUGS (13)
  1. METOPROLOL [Suspect]
     Indication: CARDIAC FAILURE
     Dosage: 50 QAM, 25QPM PO
     Route: 048
     Dates: start: 20050126, end: 20050127
  2. ACETYLCYSTEINE SOLN, INHL [Concomitant]
  3. ASPIRIN ENTERIC COATED TAB, EC [Concomitant]
  4. DOCUSATE SODIUM CAP [Concomitant]
  5. FUROSEMIDE [Concomitant]
  6. HEPARIN [Concomitant]
  7. INSULIN REGULAR -HUMAN- INJ [Concomitant]
  8. IRBESARTAN TAB [Concomitant]
  9. METOPROLOL TAB [Concomitant]
  10. METOPROLOL TAB [Concomitant]
  11. OMEPRAZOLE [Concomitant]
  12. SIMVASTATIN TAB [Concomitant]
  13. SPIRONOLACTONE TAB [Concomitant]

REACTIONS (1)
  - HEART RATE DECREASED [None]
